FAERS Safety Report 10058626 (Version 3)
Quarter: 2014Q2

REPORT INFORMATION
  Report Type: Report from Study
  Country: US (occurrence: US)
  Receive Date: 20140404
  Receipt Date: 20140409
  Transmission Date: 20141212
  Serious: Yes (Other)
  Sender: FDA-Public Use
  Company Number: PHEH2014US004950

PATIENT
  Age: 26 Year
  Sex: Female
  Weight: 114.3 kg

DRUGS (2)
  1. GILENYA [Suspect]
     Indication: RELAPSING-REMITTING MULTIPLE SCLEROSIS
     Dosage: 0.5 MG, QD
     Route: 048
     Dates: start: 20140305
  2. PROVIGIL//CHORIONIC GONADOTROPHIN [Concomitant]
     Indication: FATIGUE
     Dosage: 240 MG, DAILY
     Route: 048

REACTIONS (7)
  - Optic neuritis [Unknown]
  - Vision blurred [Unknown]
  - Eye pain [Recovering/Resolving]
  - Presyncope [Unknown]
  - Nausea [Unknown]
  - Dizziness [Unknown]
  - Headache [Unknown]
